FAERS Safety Report 8881974 (Version 1)
Quarter: 2012Q4

REPORT INFORMATION
  Report Type: 
  Country: CA (occurrence: CA)
  Receive Date: 20121102
  Receipt Date: 20121102
  Transmission Date: 20130627
  Serious: Yes (Hospitalization)
  Sender: FDA-Public Use
  Company Number: PHMT2007CA00934

PATIENT
  Age: 65 None
  Sex: Male
  Weight: 135 kg

DRUGS (1)
  1. ZOMETA [Suspect]
     Indication: PROSTATE CANCER
     Dosage: 4 mg, QMO
     Route: 042
     Dates: start: 20070322

REACTIONS (15)
  - Nephrolithiasis [Unknown]
  - Renal impairment [Unknown]
  - Renal pain [Recovered/Resolved]
  - Back pain [Not Recovered/Not Resolved]
  - Chest pain [Unknown]
  - Pain in extremity [Unknown]
  - Pain [Unknown]
  - Sinus congestion [Unknown]
  - Hypophagia [Unknown]
  - Vomiting [Unknown]
  - Abdominal pain upper [Unknown]
  - Pyrexia [Recovered/Resolved]
  - Somnolence [Unknown]
  - Chills [Not Recovered/Not Resolved]
  - Asthenia [Unknown]
